FAERS Safety Report 22640912 (Version 1)
Quarter: 2023Q2

REPORT INFORMATION
  Report Type: Report from Study
  Country: CL (occurrence: CL)
  Receive Date: 20230626
  Receipt Date: 20230626
  Transmission Date: 20230721
  Serious: Yes (Other)
  Sender: FDA-Public Use
  Company Number: CL-002147023-NVSC2022CL203429

PATIENT
  Age: 71 Year
  Sex: Female

DRUGS (3)
  1. COSENTYX [Suspect]
     Active Substance: SECUKINUMAB
     Indication: Psoriatic arthropathy
     Dosage: 150 MG, QMO
     Route: 058
     Dates: start: 20220622
  2. COSENTYX [Suspect]
     Active Substance: SECUKINUMAB
     Dosage: 150 MG, QMO
     Route: 058
     Dates: start: 20230318
  3. COSENTYX [Suspect]
     Active Substance: SECUKINUMAB
     Dosage: 150 MG
     Route: 065
     Dates: end: 20230328

REACTIONS (9)
  - Pulmonary fibrosis [Unknown]
  - Cough [Unknown]
  - Vertigo [Unknown]
  - Pain [Unknown]
  - Secretion discharge [Recovered/Resolved]
  - Abdominal pain upper [Recovering/Resolving]
  - Rotavirus infection [Recovering/Resolving]
  - Throat clearing [Unknown]
  - Nasopharyngitis [Recovered/Resolved]
